FAERS Safety Report 10448137 (Version 3)
Quarter: 2014Q4

REPORT INFORMATION
  Report Type: Spontaneous
  Country: DE (occurrence: JP)
  Receive Date: 20140911
  Receipt Date: 20141020
  Transmission Date: 20150528
  Serious: Yes (Hospitalization)
  Sender: FDA-Public Use
  Company Number: JP-FRI-1000070525

PATIENT
  Age: 86 Year
  Sex: Male
  Weight: 47 kg

DRUGS (5)
  1. MEMANTINE [Suspect]
     Active Substance: MEMANTINE
     Indication: DEMENTIA ALZHEIMER^S TYPE
     Dosage: 20 MG
     Route: 048
     Dates: start: 2012, end: 20140810
  2. MEMANTINE [Suspect]
     Active Substance: MEMANTINE
     Dosage: 5 MG
     Route: 048
     Dates: start: 20140826, end: 20140831
  3. MEMANTINE [Suspect]
     Active Substance: MEMANTINE
     Dosage: 15 MG
     Route: 048
     Dates: start: 20140908
  4. MEMANTINE [Suspect]
     Active Substance: MEMANTINE
     Dosage: 10 MG
     Route: 048
     Dates: start: 20140901, end: 20140907
  5. REZALTAS [Suspect]
     Active Substance: AZELNIDIPINE\OLMESARTAN MEDOXOMIL
     Indication: HYPERTENSION
     Dosage: 20MG /16 MG
     Route: 048
     Dates: start: 2013, end: 20140810

REACTIONS (5)
  - Cyanosis [None]
  - Tremor [None]
  - Eating disorder [None]
  - Dehydration [None]
  - Rhabdomyolysis [Recovered/Resolved]

NARRATIVE: CASE EVENT DATE: 20140801
